FAERS Safety Report 13073059 (Version 1)
Quarter: 2016Q4

REPORT INFORMATION
  Report Type: Spontaneous
  Country: US (occurrence: US)
  Receive Date: 20161229
  Receipt Date: 20161229
  Transmission Date: 20170207
  Serious: Yes (Hospitalization)
  Sender: FDA-Public Use
  Company Number: US-JUBILANT CADISTA PHARMACEUTICALS-2016JUB00433

PATIENT
  Age: 63 Year
  Sex: Male
  Weight: 113.2 kg

DRUGS (4)
  1. ADCIRCA [Concomitant]
     Active Substance: TADALAFIL
  2. REMODULIN [Suspect]
     Active Substance: TREPROSTINIL
     Indication: PULMONARY HYPERTENSION
     Dosage: 60 NG/KG/MIN
     Route: 042
     Dates: start: 20160713
  3. PREDNISONE. [Suspect]
     Active Substance: PREDNISONE
  4. ELIQUIS [Concomitant]
     Active Substance: APIXABAN

REACTIONS (5)
  - Weight decreased [Unknown]
  - Gastric perforation [Unknown]
  - Haematochezia [Unknown]
  - Gastrointestinal haemorrhage [Unknown]
  - Diarrhoea [Unknown]

NARRATIVE: CASE EVENT DATE: 20161028
